FAERS Safety Report 23172276 (Version 1)
Quarter: 2023Q4

REPORT INFORMATION
  Report Type: Spontaneous
  Country: SY (occurrence: SY)
  Receive Date: 20231110
  Receipt Date: 20231110
  Transmission Date: 20240110
  Serious: Yes (Other)
  Sender: FDA-Public Use
  Company Number: SY-SUN PHARMACEUTICAL INDUSTRIES LTD-2023R1-417565

PATIENT
  Age: 45 Year
  Sex: Female

DRUGS (5)
  1. DEXAMETHASONE [Suspect]
     Active Substance: DEXAMETHASONE
     Indication: Chronic obstructive pulmonary disease
     Route: 065
  2. LEVOFLOXACIN [Suspect]
     Active Substance: LEVOFLOXACIN
     Indication: Chronic obstructive pulmonary disease
     Route: 065
  3. VANCOMYCIN HYDROCHLORIDE [Suspect]
     Active Substance: VANCOMYCIN HYDROCHLORIDE
     Indication: Chronic obstructive pulmonary disease
     Route: 065
  4. INSULIN NOS [Suspect]
     Active Substance: INSULIN NOS
     Indication: Chronic obstructive pulmonary disease
     Route: 065
  5. ENOXAPARIN SODIUM [Suspect]
     Active Substance: ENOXAPARIN SODIUM
     Indication: Chronic obstructive pulmonary disease
     Route: 065

REACTIONS (1)
  - Condition aggravated [Unknown]
